FAERS Safety Report 13472476 (Version 3)
Quarter: 2017Q2

REPORT INFORMATION
  Report Type: Report from Study
  Country: US (occurrence: US)
  Receive Date: 20170424
  Receipt Date: 20170614
  Transmission Date: 20170830
  Serious: Yes (Hospitalization)
  Sender: FDA-Public Use
  Company Number: US-PFIZER INC-2016602656

PATIENT
  Age: 51 Year
  Sex: Female

DRUGS (1)
  1. IBRANCE [Suspect]
     Active Substance: PALBOCICLIB
     Indication: BREAST CANCER
     Dosage: 125 MG, DAILY
     Route: 048
     Dates: start: 20161223

REACTIONS (13)
  - Constipation [Unknown]
  - Rhinorrhoea [Not Recovered/Not Resolved]
  - Asthenia [Not Recovered/Not Resolved]
  - Fatigue [Not Recovered/Not Resolved]
  - Alopecia [Unknown]
  - Hypercapnia [Unknown]
  - Cough [Not Recovered/Not Resolved]
  - Diarrhoea [Unknown]
  - Productive cough [Recovering/Resolving]
  - Throat irritation [Not Recovered/Not Resolved]
  - Dyspnoea [Unknown]
  - Stomatitis [Not Recovered/Not Resolved]
  - Hypoaesthesia [Not Recovered/Not Resolved]
